FAERS Safety Report 20129684 (Version 1)
Quarter: 2021Q4

REPORT INFORMATION
  Report Type: Report from Study
  Country: DE (occurrence: DE)
  Receive Date: 20211130
  Receipt Date: 20211130
  Transmission Date: 20220303
  Serious: Yes (Other)
  Sender: FDA-Public Use
  Company Number: None

PATIENT
  Age: 46 Year

DRUGS (1)
  1. ERLOTINIB HYDROCHLORIDE [Suspect]
     Active Substance: ERLOTINIB HYDROCHLORIDE
     Indication: Squamous cell carcinoma of the vulva
     Route: 048

REACTIONS (3)
  - Clostridium difficile colitis [Unknown]
  - Hepatic enzyme increased [Unknown]
  - Skin fissures [Unknown]
